FAERS Safety Report 17504113 (Version 1)
Quarter: 2020Q1

REPORT INFORMATION
  Report Type: Report from Study
  Country: TH (occurrence: TH)
  Receive Date: 20200305
  Receipt Date: 20200305
  Transmission Date: 20200409
  Serious: Yes (Other)
  Sender: FDA-Public Use
  Company Number: TH-ASTRAZENECA-2020SE30588

PATIENT
  Age: 681 Month
  Sex: Female

DRUGS (2)
  1. IMFINZI [Suspect]
     Active Substance: DURVALUMAB
     Indication: LUNG NEOPLASM MALIGNANT
     Dosage: 500.0MG UNKNOWN
     Route: 042
     Dates: start: 20190924
  2. IMFINZI [Suspect]
     Active Substance: DURVALUMAB
     Indication: LUNG NEOPLASM MALIGNANT
     Dosage: 500.0MG UNKNOWN
     Route: 042
     Dates: start: 20200225

REACTIONS (4)
  - Thyroid hormones decreased [Unknown]
  - Tremor [Unknown]
  - Ill-defined disorder [Unknown]
  - Pneumonitis [Recovering/Resolving]

NARRATIVE: CASE EVENT DATE: 202001
